FAERS Safety Report 10742309 (Version 1)
Quarter: 2015Q1

REPORT INFORMATION
  Report Type: Spontaneous
  Country: CN (occurrence: CN)
  Receive Date: 20150127
  Receipt Date: 20150127
  Transmission Date: 20150721
  Serious: Yes (Hospitalization)
  Sender: FDA-Public Use
  Company Number: CN-ELI_LILLY_AND_COMPANY-CN201501005950

PATIENT
  Age: 63 Year
  Sex: Female
  Weight: 60 kg

DRUGS (7)
  1. CECLOR [Suspect]
     Active Substance: CEFACLOR
     Indication: PYREXIA
     Dosage: 375 MG, BID
     Dates: start: 20140719, end: 20140721
  2. CHLORPHENAMINE MALEATE [Concomitant]
     Active Substance: CHLORPHENIRAMINE MALEATE
     Indication: PYREXIA
     Dosage: 1 DF, TID
     Route: 048
     Dates: start: 20140719, end: 20140721
  3. PARACETAMOL [Concomitant]
     Active Substance: ACETAMINOPHEN
  4. AMINOPHENAZONE [Concomitant]
     Active Substance: AMINOPHENAZONE
  5. LEVOFLOXACIN. [Concomitant]
     Active Substance: LEVOFLOXACIN
     Indication: PYREXIA
     Dosage: 500 MG, SINGLE
     Route: 042
     Dates: start: 20140719, end: 20140719
  6. SODIUM CHLORIDE. [Concomitant]
     Active Substance: SODIUM CHLORIDE
     Indication: PYREXIA
     Dosage: UNK, SINGLE
     Route: 042
     Dates: start: 20140719, end: 20140719
  7. CAFFEINE. [Concomitant]
     Active Substance: CAFFEINE

REACTIONS (2)
  - Drug-induced liver injury [Recovering/Resolving]
  - Eye swelling [Recovering/Resolving]

NARRATIVE: CASE EVENT DATE: 20140720
